FAERS Safety Report 15986856 (Version 1)
Quarter: 2019Q1

REPORT INFORMATION
  Report Type: Spontaneous
  Country: NL (occurrence: NL)
  Receive Date: 20190220
  Receipt Date: 20190220
  Transmission Date: 20190418
  Serious: Yes (Hospitalization)
  Sender: FDA-Public Use
  Company Number: NL-TEVA-2019-NL-1013083

PATIENT
  Age: 58 Year
  Sex: Male
  Weight: 92 kg

DRUGS (4)
  1. STAMARIL [Suspect]
     Active Substance: YELLOW FEVER VIRUS STRAIN 17D-204 LIVE ANTIGEN
     Indication: IMMUNISATION
     Route: 058
     Dates: start: 20140508, end: 20140508
  2. VALSARTAN TABLET OMHULD 80MG [Suspect]
     Active Substance: VALSARTAN
     Indication: HYPERTENSION
     Dosage: 80 MILLIGRAM DAILY; 1 TIME PER DAY 1 PIECE (S)
     Route: 048
     Dates: start: 20120809, end: 20140519
  3. CRESTOR (ROSUVASTATINE) [Concomitant]
     Dosage: ONCE DAILY
     Route: 048
     Dates: start: 1998
  4. ASPRO (ACETYLSALICYLIC ACID) [Concomitant]
     Dosage: ONCE DAILY
     Route: 048
     Dates: start: 1998

REACTIONS (11)
  - Pyrexia [Recovered/Resolved]
  - Pruritus [Recovered/Resolved]
  - Myalgia [Recovered/Resolved]
  - Cough [Recovered/Resolved]
  - Hypotension [Recovered/Resolved]
  - Headache [Recovered/Resolved]
  - Rash generalised [Recovered/Resolved]
  - Sense of oppression [Recovered/Resolved]
  - Malaise [Recovered/Resolved]
  - Drug hypersensitivity [Recovered/Resolved]
  - Fatigue [Recovered/Resolved]

NARRATIVE: CASE EVENT DATE: 20140509
